FAERS Safety Report 12980656 (Version 5)
Quarter: 2017Q3

REPORT INFORMATION
  Report Type: Report from Study
  Country: CO (occurrence: CO)
  Receive Date: 20161128
  Receipt Date: 20170704
  Transmission Date: 20171127
  Serious: Yes (Other)
  Sender: FDA-Public Use
  Company Number: PHHY2015CO043050

PATIENT
  Age: 33 Year
  Sex: Female
  Weight: 89 kg

DRUGS (5)
  1. SIGNIFOR [Suspect]
     Active Substance: PASIREOTIDE
     Dosage: 0.6 MG, Q12H (TWICE A DAY)
     Route: 058
     Dates: start: 20161116
  2. HYDROCHLOROTHIAZIDE. [Concomitant]
     Active Substance: HYDROCHLOROTHIAZIDE
     Indication: HYPERTENSION
     Dosage: 25 MG, QD
     Route: 048
  3. SIGNIFOR [Suspect]
     Active Substance: PASIREOTIDE
     Indication: CUSHING^S SYNDROME
     Dosage: 0.6 MG, Q12H (TWICE A DAY)
     Route: 058
     Dates: start: 20141001, end: 201606
  4. AMLODIPINE [Concomitant]
     Active Substance: AMLODIPINE BESYLATE
     Indication: HYPERTENSION
     Dosage: 5 MG, QD
     Route: 048
  5. LOSARTAN. [Concomitant]
     Active Substance: LOSARTAN
     Indication: HYPERTENSION
     Dosage: 50 MG, BID
     Route: 048

REACTIONS (14)
  - Musculoskeletal pain [Unknown]
  - Gait inability [Unknown]
  - Exophthalmos [Unknown]
  - Peripheral swelling [Unknown]
  - Convalescent [Unknown]
  - Weight increased [Unknown]
  - Cholelithiasis [Unknown]
  - Abdominal pain [Unknown]
  - Skin striae [Unknown]
  - Intraocular pressure increased [Unknown]
  - Fatigue [Unknown]
  - Biliary colic [Unknown]
  - Malaise [Unknown]
  - Pain [Unknown]

NARRATIVE: CASE EVENT DATE: 20161118
